FAERS Safety Report 22185729 (Version 1)
Quarter: 2023Q2

REPORT INFORMATION
  Report Type: Spontaneous
  Country: US (occurrence: None)
  Receive Date: 20230406
  Receipt Date: 20230406
  Transmission Date: 20230722
  Serious: Yes (Hospitalization)
  Sender: FDA-Public Use
  Company Number: None

PATIENT
  Age: 45 Year
  Sex: Female
  Weight: 86.64 kg

DRUGS (34)
  1. CAPECITABINE [Suspect]
     Active Substance: CAPECITABINE
     Indication: Breast cancer female
     Dosage: FREQUENCY : TWICE A DAY;?
     Route: 048
  2. ATENOLOL [Concomitant]
  3. BISACODYL [Concomitant]
     Active Substance: BISACODYL
  4. DEXAMETHASONE [Concomitant]
  5. DOXYCYCLINE [Concomitant]
  6. ENOXAPARIN [Concomitant]
  7. MULTIVITAMIN [Concomitant]
  8. FERRARA [Concomitant]
  9. FISH OIL [Concomitant]
  10. FULVESTRANT [Concomitant]
     Active Substance: FULVESTRANT
  11. HYDROCHLOROTHIAZIDE [Concomitant]
     Active Substance: HYDROCHLOROTHIAZIDE
  12. IBPROFEN [Concomitant]
  13. LACTULOSE [Concomitant]
     Active Substance: LACTULOSE
  14. LEVOTHYROXINE [Concomitant]
  15. LOPERADMIDE [Concomitant]
  16. LORAZEPAM [Concomitant]
     Active Substance: LORAZEPAM
  17. LUPRON [Concomitant]
  18. LYRICA [Concomitant]
     Active Substance: PREGABALIN
  19. METOCLOPRAMIDE [Concomitant]
     Active Substance: METOCLOPRAMIDE
  20. MIRALAX [Concomitant]
     Active Substance: POLYETHYLENE GLYCOL 3350
  21. MORPHINE [Concomitant]
  22. MS CONTIN [Concomitant]
  23. NARCAN [Concomitant]
  24. ONDANSETRON [Concomitant]
  25. PANTOPRAZOLE [Concomitant]
  26. PENOXIFYLLINE [Concomitant]
  27. PROBIOTICS NOS [Concomitant]
     Active Substance: PROBIOTICS NOS
  28. PROCHLORPERAZINE [Concomitant]
  29. DOCUSATE SODIUM\SENNOSIDES [Concomitant]
     Active Substance: DOCUSATE SODIUM\SENNOSIDES
  30. SYMPROIC [Concomitant]
     Active Substance: NALDEMEDINE
  31. TUKYSA [Concomitant]
     Active Substance: TUCATINIB
  32. TYENOL [Concomitant]
  33. VITAMIN E [Concomitant]
     Active Substance: .ALPHA.-TOCOPHEROL
  34. XGEVA [Concomitant]
     Active Substance: DENOSUMAB

REACTIONS (2)
  - Spinal operation [None]
  - Therapy interrupted [None]
